FAERS Safety Report 11867679 (Version 1)
Quarter: 2015Q4

REPORT INFORMATION
  Report Type: Spontaneous
  Country: US (occurrence: US)
  Receive Date: 20151224
  Receipt Date: 20151224
  Transmission Date: 20160305
  Serious: No
  Sender: FDA-Public Use
  Company Number: US-ASTRAZENECA-2015SF27429

PATIENT
  Age: 818 Month
  Sex: Female
  Weight: 104.3 kg

DRUGS (11)
  1. TOPROL XL [Suspect]
     Active Substance: METOPROLOL SUCCINATE
     Route: 048
  2. AMITRIPTYLINE HCL [Concomitant]
     Active Substance: AMITRIPTYLINE
  3. DIGOXIN. [Concomitant]
     Active Substance: DIGOXIN
  4. SIMVASTATIN. [Concomitant]
     Active Substance: SIMVASTATIN
  5. THYROID [Concomitant]
     Active Substance: LEVOTHYROXINE\LIOTHYRONINE
  6. BYDUREON [Suspect]
     Active Substance: EXENATIDE
     Indication: TYPE 2 DIABETES MELLITUS
     Route: 058
     Dates: start: 20151211
  7. ASPIRIN. [Concomitant]
     Active Substance: ASPIRIN
  8. LOSARTAN AND HYDROCHLOROTHIAZIDE [Concomitant]
     Active Substance: HYDROCHLOROTHIAZIDE\LOSARTAN POTASSIUM
  9. METFORMIN [Concomitant]
     Active Substance: METFORMIN HYDROCHLORIDE
  10. BYDUREON [Suspect]
     Active Substance: EXENATIDE
     Indication: WEIGHT DECREASED
     Route: 058
     Dates: start: 20151211
  11. PRADAXA [Concomitant]
     Active Substance: DABIGATRAN ETEXILATE MESYLATE

REACTIONS (4)
  - Decreased appetite [Recovering/Resolving]
  - Fatigue [Recovering/Resolving]
  - Intentional product misuse [Unknown]
  - Blood glucose decreased [Recovering/Resolving]

NARRATIVE: CASE EVENT DATE: 201512
